FAERS Safety Report 5279392-X (Version None)
Quarter: 2007Q1

REPORT INFORMATION
  Report Type: 
  Country: None (occurrence: None)
  Receive Date: 20070328
  Receipt Date: 20070221
  Transmission Date: 20070707
  Serious: Yes (Other)
  Sender: FDA-Public Use
  Company Number: ES-BOEHRINGER INGELHEIM PHARMACEUTICALS, INC.-2007-BP-04285YA

PATIENT
  Sex: Male
  Weight: 98 kg

DRUGS (2)
  1. OMNIC OCAS ORODISPERSABLE CR [Suspect]
     Indication: BENIGN PROSTATIC HYPERPLASIA
     Route: 048
     Dates: start: 20060910, end: 20070101
  2. HYDROCHLOROTHIAZIDE W/VALSARTAN [Concomitant]
     Indication: HYPERTENSION
     Route: 048
     Dates: start: 20050601

REACTIONS (2)
  - GYNAECOMASTIA [None]
  - INFLAMMATION [None]
